FAERS Safety Report 21772596 (Version 2)
Quarter: 2023Q1

REPORT INFORMATION
  Report Type: Spontaneous
  Country: JP (occurrence: JP)
  Receive Date: 20221223
  Receipt Date: 20230217
  Transmission Date: 20230418
  Serious: Yes (Other)
  Sender: FDA-Public Use
  Company Number: JP-CHUGAI-2022040863

PATIENT
  Age: 69 Year
  Sex: Male

DRUGS (4)
  1. MIRCERA [Suspect]
     Active Substance: METHOXY POLYETHYLENE GLYCOL-EPOETIN BETA
     Indication: Nephrogenic anaemia
     Dosage: 7 MONTHS
     Route: 042
     Dates: start: 20220301, end: 202210
  2. PREDONINE [Suspect]
     Active Substance: PREDNISOLONE
     Indication: Autoimmune haemolytic anaemia
     Route: 065
     Dates: start: 20221122, end: 2022
  3. PREDONINE [Suspect]
     Active Substance: PREDNISOLONE
     Dosage: DOSE WAS REDUCED
     Route: 065
     Dates: start: 202212
  4. ROXADUSTAT [Suspect]
     Active Substance: ROXADUSTAT
     Indication: Product used for unknown indication
     Route: 065
     Dates: end: 202212

REACTIONS (3)
  - Shunt occlusion [Unknown]
  - Aplasia pure red cell [Not Recovered/Not Resolved]
  - Drug ineffective [Unknown]

NARRATIVE: CASE EVENT DATE: 20220101
